FAERS Safety Report 6418180-5 (Version None)
Quarter: 2009Q4

REPORT INFORMATION
  Report Type: 
  Country: None (occurrence: None)
  Receive Date: 20091028
  Receipt Date: 20091014
  Transmission Date: 20100525
  Serious: Yes (Death, Other)
  Sender: FDA-Public Use
  Company Number: US-ELI_LILLY_AND_COMPANY-US200910003625

PATIENT
  Age: 57 Year
  Sex: Female
  Weight: 58 kg

DRUGS (3)
  1. EFFIENT [Suspect]
     Indication: PERCUTANEOUS CORONARY INTERVENTION
     Dosage: 60 MG, UNK
     Route: 048
     Dates: start: 20091013
  2. NITRO                              /00003201/ [Concomitant]
     Dosage: UNK, UNK
     Route: 042
     Dates: start: 20091013
  3. ANGIOMAX [Concomitant]
     Dates: start: 20091013

REACTIONS (1)
  - HAEMORRHAGIC STROKE [None]
